FAERS Safety Report 20514627 (Version 1)
Quarter: 2022Q1

REPORT INFORMATION
  Report Type: Spontaneous
  Country: UA (occurrence: UA)
  Receive Date: 20220224
  Receipt Date: 20220224
  Transmission Date: 20220424
  Serious: Yes (Death, Other)
  Sender: FDA-Public Use
  Company Number: UA-BoehringerIngelheim-2022-BI-155282

PATIENT
  Age: 76 Year
  Sex: Male

DRUGS (1)
  1. PRADAXA [Suspect]
     Active Substance: DABIGATRAN ETEXILATE MESYLATE
     Indication: Ischaemic stroke

REACTIONS (2)
  - Thrombosis mesenteric vessel [Fatal]
  - Large intestine polyp [Unknown]

NARRATIVE: CASE EVENT DATE: 20220201
